FAERS Safety Report 16232959 (Version 3)
Quarter: 2019Q2

REPORT INFORMATION
  Report Type: Spontaneous
  Country: US (occurrence: US)
  Receive Date: 20190424
  Receipt Date: 20190528
  Transmission Date: 20190711
  Serious: No
  Sender: FDA-Public Use
  Company Number: US-PFIZER INC-2019172144

PATIENT
  Age: 44 Year
  Sex: Female

DRUGS (1)
  1. BOSULIF [Suspect]
     Active Substance: BOSUTINIB MONOHYDRATE
     Dosage: 100 MG, UNK
     Dates: start: 20190406

REACTIONS (5)
  - Palpitations [Unknown]
  - Rash [Unknown]
  - Back pain [Unknown]
  - Dysphonia [Unknown]
  - Vaginal haemorrhage [Unknown]
